FAERS Safety Report 9885978 (Version 3)
Quarter: 2014Q1

REPORT INFORMATION
  Report Type: Spontaneous
  Country: JP (occurrence: JP)
  Receive Date: 20140210
  Receipt Date: 20140314
  Transmission Date: 20141002
  Serious: Yes (Hospitalization)
  Sender: FDA-Public Use
  Company Number: JP-GLAXOSMITHKLINE-B0961351A

PATIENT
  Age: 61 Year
  Sex: Female

DRUGS (6)
  1. HYCAMTIN [Suspect]
     Indication: OVARIAN CANCER RECURRENT
     Dosage: 1.25MGM2 PER DAY
     Route: 042
     Dates: start: 20121009, end: 20121203
  2. EMEND [Concomitant]
     Dates: start: 20121009, end: 20121206
  3. NOVAMINE [Concomitant]
     Dosage: 15MG PER DAY
     Route: 048
     Dates: start: 20121015, end: 20121020
  4. KYTRIL [Concomitant]
     Dosage: 3MG PER DAY
     Dates: start: 20121009, end: 20121207
  5. DECADRON [Concomitant]
     Indication: VOMITING
     Dosage: 6.6MG PER DAY
     Dates: start: 20121009, end: 20121207
  6. CARBOPLATIN [Concomitant]

REACTIONS (5)
  - White blood cell count decreased [Recovered/Resolved]
  - Neutrophil count decreased [Recovered/Resolved]
  - Red blood cell count decreased [Recovered/Resolved]
  - Anaemia [Recovered/Resolved]
  - Oedema peripheral [Recovered/Resolved]
